FAERS Safety Report 4381791-5 (Version None)
Quarter: 2004Q2

REPORT INFORMATION
  Report Type: 
  Country: None (occurrence: None)
  Receive Date: 20040615
  Receipt Date: 20040603
  Transmission Date: 20050107
  Serious: Yes (Other)
  Sender: FDA-Public Use
  Company Number: JP-JNJFOC-20040601399

PATIENT
  Age: 39 Year
  Sex: Male

DRUGS (4)
  1. ITRACONAZOLE [Suspect]
     Indication: BRONCHOPULMONARY ASPERGILLOSIS
     Dosage: 200 MG, 1 IN 1 DAY, ORAL
     Route: 048
     Dates: start: 20031101
  2. LEVOFLOXACIN [Suspect]
     Indication: BRONCHOPULMONARY ASPERGILLOSIS
     Dosage: 300 MG, 1 IN 1 DAY, ORAL
     Route: 048
  3. MICAFUNGIN SODIUM (ALL OTHER THERAPEUTIC PRODUCT) [Concomitant]
     Dosage: 300 MG, 1 IN 1 DAY
  4. MEROPENEM TRIHYDRATE (MEROPENEM) [Suspect]
     Dosage: 1.5 DOSE (S), 1 IN 1 DAY

REACTIONS (2)
  - PULSE ABNORMAL [None]
  - VENTRICULAR EXTRASYSTOLES [None]
